FAERS Safety Report 7005983-1 (Version None)
Quarter: 2010Q3

REPORT INFORMATION
  Report Type: 
  Country: None (occurrence: None)
  Receive Date: 20100921
  Receipt Date: 20100916
  Transmission Date: 20110219
  Serious: Yes (Hospitalization, Other)
  Sender: FDA-Public Use
  Company Number: ES-ROXANE LABORATORIES, INC.-2010-RO-01238RO

PATIENT
  Sex: Male

DRUGS (4)
  1. LEVETIRACETAM [Suspect]
     Indication: MAJOR DEPRESSION
     Dates: start: 20080201
  2. LEVETIRACETAM [Suspect]
     Indication: VASCULAR DEMENTIA
  3. LEVETIRACETAM [Suspect]
     Indication: OBSESSIVE-COMPULSIVE PERSONALITY DISORDER
  4. LEVETIRACETAM [Suspect]
     Indication: COMPLEX PARTIAL SEIZURES

REACTIONS (4)
  - AGGRESSION [None]
  - LACUNAR INFARCTION [None]
  - LEUKOENCEPHALOPATHY [None]
  - PHYSICAL ASSAULT [None]
